FAERS Safety Report 10379406 (Version 1)
Quarter: 2014Q3

REPORT INFORMATION
  Report Type: Spontaneous
  Country: US (occurrence: US)
  Receive Date: 20140812
  Receipt Date: 20140812
  Transmission Date: 20150326
  Serious: Yes (Hospitalization)
  Sender: FDA-Public Use
  Company Number: US-INCYTE CORPORATION-2014IN002234

PATIENT
  Age: 69 Year
  Sex: Male

DRUGS (2)
  1. JAKAFI [Suspect]
     Active Substance: RUXOLITINIB
     Indication: MYELOFIBROSIS
     Dosage: 5 MG, BID
     Route: 048
     Dates: start: 20140503
  2. VIDAZA [Concomitant]
     Active Substance: AZACITIDINE

REACTIONS (2)
  - Pneumothorax [Unknown]
  - Biopsy lung [Unknown]

NARRATIVE: CASE EVENT DATE: 20140716
